FAERS Safety Report 8124042-8 (Version None)
Quarter: 2012Q1

REPORT INFORMATION
  Report Type: 
  Country: None (occurrence: None)
  Receive Date: 20120209
  Receipt Date: 20120126
  Transmission Date: 20120608
  Serious: Yes (Other)
  Sender: FDA-Public Use
  Company Number: IT-RANBAXY-2012RR-52394

PATIENT
  Age: 47 Year
  Sex: Female

DRUGS (4)
  1. SERTRALINE HYDROCHLORIDE [Suspect]
     Dosage: 200 MG/DAY
     Route: 065
  2. QUETIAPINE [Suspect]
     Dosage: 400 MG/ DAY
     Route: 065
  3. SERTRALINE HYDROCHLORIDE [Suspect]
     Indication: OBSESSIVE-COMPULSIVE DISORDER
     Dosage: 100 MG/DAY
     Route: 065
  4. QUETIAPINE [Suspect]
     Indication: PSYCHOTIC DISORDER
     Dosage: 800 MG/DAY
     Route: 065

REACTIONS (1)
  - PLEUROTHOTONUS [None]
